FAERS Safety Report 5192541-7 (Version None)
Quarter: 2006Q4

REPORT INFORMATION
  Report Type: 
  Country: None (occurrence: None)
  Receive Date: 20061220
  Receipt Date: 20061212
  Transmission Date: 20070319
  Serious: Yes (Hospitalization)
  Sender: FDA-Public Use
  Company Number: B0450943A

PATIENT
  Age: 13 Year
  Sex: Female

DRUGS (2)
  1. VENTOLIN [Suspect]
     Indication: ASTHMA
     Dosage: INHALED
     Route: 055
  2. FLUTICASONE+SALMETEROL [Concomitant]

REACTIONS (2)
  - DRUG INEFFECTIVE [None]
  - MUCOUS MEMBRANE DISORDER [None]
